FAERS Safety Report 6509990-4 (Version None)
Quarter: 2009Q4

REPORT INFORMATION
  Report Type: 
  Country: None (occurrence: None)
  Receive Date: 20091222
  Receipt Date: 20091214
  Transmission Date: 20100525
  Serious: Yes (Hospitalization)
  Sender: FDA-Public Use
  Company Number: CHPA2009US18664

PATIENT
  Sex: Female

DRUGS (4)
  1. VOLTAREN [Suspect]
     Indication: TENDONITIS
     Dosage: UNK, ONCE DAILY
     Route: 061
     Dates: start: 20090701
  2. DICLOFENAC [Suspect]
     Indication: TENDONITIS
     Dosage: 1 DF
     Dates: start: 20090905
  3. BENADRYL [Suspect]
     Indication: INSOMNIA
     Dosage: 1 TABLET, ONCE A NIGHT BEFORE BED
     Route: 048
  4. HYDROCODONE [Concomitant]
     Indication: ARTHRALGIA
     Dosage: UNK, PRN
     Dates: start: 20080301

REACTIONS (19)
  - APPARENT DEATH [None]
  - ASTHENIA [None]
  - BURNING SENSATION [None]
  - CARDIAC ENZYMES INCREASED [None]
  - CHEST DISCOMFORT [None]
  - DYSPNOEA [None]
  - ERYTHEMA [None]
  - FLUID RETENTION [None]
  - GENERALISED OEDEMA [None]
  - HEAD INJURY [None]
  - HYPERSENSITIVITY [None]
  - LOSS OF CONSCIOUSNESS [None]
  - LOSS OF EMPLOYMENT [None]
  - MYOCARDIAL INFARCTION [None]
  - PHARYNGEAL OEDEMA [None]
  - PRURITUS [None]
  - RESPIRATORY ARREST [None]
  - STENT PLACEMENT [None]
  - WEIGHT INCREASED [None]
